FAERS Safety Report 10181740 (Version 1)
Quarter: 2014Q2

REPORT INFORMATION
  Report Type: Spontaneous
  Country: US (occurrence: US)
  Receive Date: 20140519
  Receipt Date: 20140519
  Transmission Date: 20141212
  Serious: No
  Sender: FDA-Public Use
  Company Number: US-BANPHARM-20142011

PATIENT
  Age: 53 Year
  Sex: Male
  Weight: 72.57 kg

DRUGS (3)
  1. IBUPROFEN CAPSULES 200 MG [Suspect]
     Indication: HEADACHE
     Dosage: 4-6 DF, PRN,
     Route: 048
     Dates: start: 20131221, end: 20131225
  2. SUDAFED [Concomitant]
     Dates: start: 20131221, end: 20131225
  3. VITAMINS [Concomitant]

REACTIONS (5)
  - Condition aggravated [Recovered/Resolved]
  - Somnolence [Recovered/Resolved]
  - Feeling abnormal [Recovered/Resolved]
  - Vision blurred [Recovered/Resolved]
  - Local swelling [Recovered/Resolved]
